FAERS Safety Report 6509620-1 (Version None)
Quarter: 2009Q4

REPORT INFORMATION
  Report Type: 
  Country: None (occurrence: None)
  Receive Date: 20091221
  Receipt Date: 20091221
  Transmission Date: 20100525
  Serious: Yes (Hospitalization)
  Sender: FDA-Public Use
  Company Number: None

PATIENT
  Sex: Female
  Weight: 71.9 kg

DRUGS (2)
  1. CYTARABINE [Suspect]
     Dosage: 95.76 G
     Dates: end: 20091106
  2. ETOPOSIDE [Suspect]
     Dosage: 2644 MG
     Dates: end: 20090820

REACTIONS (10)
  - ATRIAL FIBRILLATION [None]
  - HYPOTENSION [None]
  - LEGIONELLA INFECTION [None]
  - LUNG ABSCESS [None]
  - PERICARDIAL EFFUSION [None]
  - PLEURAL EFFUSION [None]
  - PNEUMONIA [None]
  - PYREXIA [None]
  - RESPIRATORY DISTRESS [None]
  - TACHYCARDIA [None]
